FAERS Safety Report 5854147-3 (Version None)
Quarter: 2008Q3

REPORT INFORMATION
  Report Type: 
  Country: None (occurrence: None)
  Receive Date: 20080822
  Receipt Date: 20080818
  Transmission Date: 20090109
  Serious: Yes (Death)
  Sender: FDA-Public Use
  Company Number: CA-EISAI MEDICAL RESEARCH-E2020-03183-SPO-CA

PATIENT
  Age: 77 Year
  Sex: Female

DRUGS (2)
  1. ARICEPT [Suspect]
     Indication: DRUG USE FOR UNKNOWN INDICATION
     Route: 048
     Dates: start: 20071001, end: 20080601
  2. ARICEPT [Suspect]
     Route: 048
     Dates: start: 20080601

REACTIONS (3)
  - ASTHENIA [None]
  - CARDIAC DEATH [None]
  - DEPRESSION [None]
